FAERS Safety Report 5254362-6 (Version None)
Quarter: 2007Q1

REPORT INFORMATION
  Report Type: 
  Country: None (occurrence: None)
  Receive Date: 20070302
  Receipt Date: 20070222
  Transmission Date: 20070707
  Serious: Yes (Hospitalization)
  Sender: FDA-Public Use
  Company Number: CA-ABBOTT-07P-028-0360353-00

PATIENT
  Sex: Male

DRUGS (1)
  1. LUPRON DEPOT-3 [Suspect]
     Indication: PROSTATE CANCER
     Route: 030
     Dates: start: 20010101

REACTIONS (4)
  - DYSPNOEA [None]
  - INCREASED UPPER AIRWAY SECRETION [None]
  - MYOCARDIAL INFARCTION [None]
  - WHEEZING [None]
